FAERS Safety Report 25884295 (Version 1)
Quarter: 2025Q4

REPORT INFORMATION
  Report Type: Spontaneous
  Country: US (occurrence: None)
  Receive Date: 20251003
  Receipt Date: 20251003
  Transmission Date: 20260118
  Serious: Yes (Hospitalization)
  Sender: FDA-CTU
  Company Number: None

PATIENT
  Age: 66 Year
  Sex: Female

DRUGS (1)
  1. AUSTEDO XR [Suspect]
     Active Substance: DEUTETRABENAZINE
     Indication: Huntington^s disease
     Dosage: 12 MG DAILY ORAL ?
     Route: 048
     Dates: start: 20250904, end: 20251003

REACTIONS (3)
  - Movement disorder [None]
  - Fall [None]
  - Balance disorder [None]

NARRATIVE: CASE EVENT DATE: 20251003
